FAERS Safety Report 7210292-1 (Version None)
Quarter: 2010Q4

REPORT INFORMATION
  Report Type: 
  Country: None (occurrence: None)
  Receive Date: 20101223
  Receipt Date: 20101215
  Transmission Date: 20110411
  Serious: Yes (Other)
  Sender: FDA-Public Use
  Company Number: CIO10017904

PATIENT
  Age: 64 Year
  Sex: Female

DRUGS (1)
  1. METAMUCIL-2 [Suspect]
     Dosage: ORAL
     Route: 048

REACTIONS (1)
  - INTESTINAL OBSTRUCTION [None]
